FAERS Safety Report 16820983 (Version 1)
Quarter: 2019Q3

REPORT INFORMATION
  Report Type: Spontaneous
  Country: US (occurrence: US)
  Receive Date: 20190918
  Receipt Date: 20190918
  Transmission Date: 20191005
  Serious: Yes (Other)
  Sender: FDA-Public Use
  Company Number: US-ROCHE-2410794

PATIENT
  Sex: Female

DRUGS (1)
  1. OCREVUS [Suspect]
     Active Substance: OCRELIZUMAB
     Indication: MULTIPLE SCLEROSIS
     Dosage: AS DIRECTED PER MONTH?300MG/10ML
     Route: 042
     Dates: start: 20190306

REACTIONS (2)
  - Hip arthroplasty [Unknown]
  - Weight decreased [Unknown]
